FAERS Safety Report 20431486 (Version 12)
Quarter: 2024Q3

REPORT INFORMATION
  Report Type: Report from Study
  Country: US (occurrence: US)
  Receive Date: 20220204
  Receipt Date: 20240925
  Transmission Date: 20241017
  Serious: No
  Sender: GLAXOSMITHKLINE
  Company Number: US-GLAXOSMITHKLINE-US2022AMR017814

PATIENT
  Sex: Female

DRUGS (2)
  1. NIRAPARIB [Suspect]
     Active Substance: NIRAPARIB
     Indication: Ovarian cancer
     Dosage: 200 MG
     Dates: start: 20220124, end: 20220201
  2. NIRAPARIB [Suspect]
     Active Substance: NIRAPARIB
     Dosage: 100 MG, QD
     Dates: start: 20220208

REACTIONS (21)
  - Dry mouth [Not Recovered/Not Resolved]
  - Fatigue [Not Recovered/Not Resolved]
  - Dizziness [Not Recovered/Not Resolved]
  - Nausea [Not Recovered/Not Resolved]
  - Insomnia [Recovering/Resolving]
  - Headache [Not Recovered/Not Resolved]
  - Migraine [Unknown]
  - Vomiting [Recovered/Resolved]
  - Discomfort [Unknown]
  - Muscle spasms [Not Recovered/Not Resolved]
  - Vision blurred [Recovering/Resolving]
  - Condition aggravated [Unknown]
  - Restless legs syndrome [Not Recovered/Not Resolved]
  - Balance disorder [Recovering/Resolving]
  - Joint swelling [Recovering/Resolving]
  - Coronavirus infection [Not Recovered/Not Resolved]
  - Musculoskeletal stiffness [Not Recovered/Not Resolved]
  - Influenza [Not Recovered/Not Resolved]
  - Drug monitoring procedure not performed [Unknown]
  - Product dose omission issue [Not Recovered/Not Resolved]
  - Off label use [Unknown]
